FAERS Safety Report 9339546 (Version 2)
Quarter: 2013Q4

REPORT INFORMATION
  Report Type: Spontaneous
  Country: GB (occurrence: GB)
  Receive Date: 20130610
  Receipt Date: 20131115
  Transmission Date: 20140711
  Serious: Yes (Disabling)
  Sender: FDA-Public Use
  Company Number: GB-WATSON-2013-09834

PATIENT
  Age: 40 Year
  Sex: Female
  Weight: 88 kg

DRUGS (5)
  1. MIRTAZAPINE (UNKNOWN) [Suspect]
     Indication: DEPRESSION
     Dosage: 15 MG, UNKNOWN
     Route: 048
     Dates: start: 20130429, end: 20130502
  2. CO-CODAMOL [Concomitant]
     Indication: PAIN
     Dosage: 30/500
     Route: 048
     Dates: start: 20091221
  3. LAMICTAL [Concomitant]
     Indication: EPILEPSY
     Dosage: 100 MG, BID
     Route: 048
     Dates: start: 2001
  4. RIZATRIPTAN [Concomitant]
     Indication: MIGRAINE
     Dosage: 10 MG, DAILY AS NECESSARY
     Route: 048
     Dates: start: 2009
  5. ZOLPIDEM [Concomitant]
     Indication: INSOMNIA
     Dosage: 10 MG, UNKNOWN
     Route: 048
     Dates: start: 2009

REACTIONS (3)
  - Face oedema [Recovered/Resolved]
  - Localised oedema [Recovered/Resolved]
  - Oedema peripheral [Recovered/Resolved]
